FAERS Safety Report 12356417 (Version 2)
Quarter: 2016Q2

REPORT INFORMATION
  Report Type: Report from Study
  Country: AU (occurrence: AU)
  Receive Date: 20160511
  Receipt Date: 20160526
  Transmission Date: 20160815
  Serious: Yes (Hospitalization)
  Sender: FDA-Public Use
  Company Number: AU-BIOGEN-2013BI084768

PATIENT
  Age: 46 Year
  Sex: Male
  Weight: 84.6 kg

DRUGS (9)
  1. SYMBICORT [Concomitant]
     Active Substance: BUDESONIDE\FORMOTEROL FUMARATE DIHYDRATE
     Indication: WHEEZING
     Dates: start: 20120215
  2. CRESTOR [Concomitant]
     Active Substance: ROSUVASTATIN CALCIUM
     Indication: BLOOD CHOLESTEROL
     Route: 048
     Dates: start: 20121112
  3. BG00012 [Suspect]
     Active Substance: DIMETHYL FUMARATE
     Indication: MULTIPLE SCLEROSIS
     Route: 048
     Dates: start: 20101117, end: 201308
  4. BG00012 [Suspect]
     Active Substance: DIMETHYL FUMARATE
     Route: 048
     Dates: start: 20131002
  5. PANADOL [Concomitant]
     Active Substance: ACETAMINOPHEN
     Indication: HEADACHE
     Route: 048
     Dates: start: 20090316
  6. ZYPREXA [Concomitant]
     Active Substance: OLANZAPINE
     Indication: DELUSION
     Route: 048
     Dates: start: 20120207
  7. VITAMIN C [Concomitant]
     Active Substance: ASCORBIC ACID
     Indication: SUPPLEMENTATION THERAPY
     Route: 048
     Dates: start: 201106
  8. VITAMIN D [Concomitant]
     Active Substance: CHOLECALCIFEROL
     Indication: SUPPLEMENTATION THERAPY
     Route: 048
     Dates: start: 201106
  9. CELEBREX [Concomitant]
     Active Substance: CELECOXIB
     Indication: BACK PAIN
     Route: 048
     Dates: start: 20110828

REACTIONS (1)
  - Psychotic behaviour [Recovered/Resolved]

NARRATIVE: CASE EVENT DATE: 20130903
